FAERS Safety Report 4737013-6 (Version None)
Quarter: 2005Q3

REPORT INFORMATION
  Report Type: 
  Country: None (occurrence: None)
  Receive Date: 20050808
  Receipt Date: 20050727
  Transmission Date: 20060218
  Serious: Yes (Hospitalization)
  Sender: FDA-Public Use
  Company Number: US-NOVOPROD-245900

PATIENT
  Age: 29 Year
  Sex: Male
  Weight: 75 kg

DRUGS (8)
  1. NOVOLOG [Suspect]
     Indication: INSULIN-REQUIRING TYPE II DIABETES MELLITUS
     Dosage: SLIDING SCALE IU, QD
     Route: 058
     Dates: start: 20050401, end: 20050727
  2. NOVOLOG [Suspect]
     Indication: BLOOD GLUCOSE INCREASED
     Dosage: SLIDING SCALE IU, QD
     Dates: start: 20050727
  3. VICODIN [Concomitant]
     Indication: NEURALGIA
     Dates: start: 20050727
  4. LANTUS [Concomitant]
     Indication: BLOOD GLUCOSE INCREASED
     Dates: start: 20050727
  5. AMITRIPTYLINE [Concomitant]
     Indication: NEURALGIA
     Dates: start: 20050727
  6. TYLENOL PM [Concomitant]
     Indication: INSOMNIA
     Dates: end: 20050727
  7. LOVENOX [Concomitant]
     Indication: PROPHYLAXIS
     Dates: start: 20050727
  8. NEURONTIN [Concomitant]
     Indication: NEURALGIA
     Dates: start: 20050727

REACTIONS (7)
  - BLOOD GLUCOSE DECREASED [None]
  - BLOOD GLUCOSE INCREASED [None]
  - DEVICE MALFUNCTION [None]
  - DIZZINESS [None]
  - ORTHOSTATIC HYPOTENSION [None]
  - PHARMACEUTICAL PRODUCT COMPLAINT [None]
  - SYNCOPE [None]
